FAERS Safety Report 11509833 (Version 1)
Quarter: 2015Q3

REPORT INFORMATION
  Report Type: Spontaneous
  Country: US (occurrence: US)
  Receive Date: 20150915
  Receipt Date: 20150915
  Transmission Date: 20151125
  Serious: No
  Sender: FDA-Public Use
  Company Number: US-JNJFOC-20130410300

PATIENT

DRUGS (6)
  1. ADVIL [Suspect]
     Active Substance: IBUPROFEN
     Indication: DRUG LEVEL
     Route: 065
  2. IBUPROFEN SODIUM [Suspect]
     Active Substance: IBUPROFEN SODIUM
     Indication: DRUG LEVEL
     Dosage: EACH EQUIVALENT TO 200MG IBU FREE ACID
     Route: 065
  3. MOTRIN IB [Suspect]
     Active Substance: IBUPROFEN
     Route: 065
  4. ADVIL [Suspect]
     Active Substance: IBUPROFEN
     Indication: DRUG LEVEL
     Route: 065
  5. NUROFEN [Suspect]
     Active Substance: IBUPROFEN
     Indication: DRUG LEVEL
     Dosage: EACH EQUIVALENT TO 200MG IBU FREE ACID
     Route: 065
  6. MOTRIN IB [Suspect]
     Active Substance: IBUPROFEN
     Indication: DRUG LEVEL
     Route: 065

REACTIONS (8)
  - Vision blurred [Unknown]
  - Haemorrhoids [Unknown]
  - Ear infection [Recovered/Resolved]
  - Headache [Unknown]
  - Vomiting [Unknown]
  - Dermatitis contact [Unknown]
  - Nausea [Unknown]
  - Dizziness [Unknown]
